FAERS Safety Report 23870458 (Version 2)
Quarter: 2024Q2

REPORT INFORMATION
  Report Type: Spontaneous
  Country: CZ (occurrence: CZ)
  Receive Date: 20240518
  Receipt Date: 20240612
  Transmission Date: 20240716
  Serious: Yes (Other)
  Sender: FDA-Public Use
  Company Number: CZ-ABBVIE-5762801

PATIENT
  Sex: Female
  Weight: 62 kg

DRUGS (3)
  1. RINVOQ [Suspect]
     Active Substance: UPADACITINIB
     Indication: Dermatitis atopic
     Dosage: LAST ADMIN DATE: 2024
     Route: 048
     Dates: start: 20240320
  2. TOBRADEX [Concomitant]
     Active Substance: DEXAMETHASONE\TOBRAMYCIN
     Indication: Herpes virus infection
     Dates: start: 202405
  3. ACYCLOVIR [Concomitant]
     Active Substance: ACYCLOVIR
     Indication: Herpes virus infection
     Route: 048
     Dates: start: 20240507, end: 20240514

REACTIONS (9)
  - Herpes ophthalmic [Recovered/Resolved]
  - Bronchitis [Recovered/Resolved]
  - Superinfection bacterial [Recovered/Resolved]
  - Blister [Unknown]
  - Pain [Unknown]
  - Swelling [Unknown]
  - Purulent discharge [Unknown]
  - Erythema [Unknown]
  - Papule [Unknown]

NARRATIVE: CASE EVENT DATE: 20240101
